FAERS Safety Report 6816442-0 (Version None)
Quarter: 2010Q3

REPORT INFORMATION
  Report Type: 
  Country: None (occurrence: None)
  Receive Date: 20100705
  Receipt Date: 20100701
  Transmission Date: 20110219
  Serious: Yes (Hospitalization)
  Sender: FDA-Public Use
  Company Number: US-BRISTOL-MYERS SQUIBB COMPANY-15173859

PATIENT
  Age: 70 Year
  Sex: Male

DRUGS (5)
  1. ERBITUX [Suspect]
     Indication: COLON CANCER
     Dosage: SECOND DOSE OF ERBITUX WAS ON 22JUN2010
     Dates: start: 20100608
  2. BENICAR [Concomitant]
  3. LOTREL [Concomitant]
  4. NITROGLYCERIN [Concomitant]
  5. PROCHLORPERAZINE [Concomitant]

REACTIONS (5)
  - DIARRHOEA [None]
  - HAEMATOCHEZIA [None]
  - MUSCLE SPASMS [None]
  - RETCHING [None]
  - VOMITING [None]
